FAERS Safety Report 21372000 (Version 1)
Quarter: 2022Q3

REPORT INFORMATION
  Report Type: Spontaneous
  Country: CZ (occurrence: CZ)
  Receive Date: 20220923
  Receipt Date: 20220923
  Transmission Date: 20221027
  Serious: Yes (Other)
  Sender: FDA-Public Use
  Company Number: CZ-GLAXOSMITHKLINE-CZ2022EME132254

PATIENT

DRUGS (14)
  1. SUMATRIPTAN [Suspect]
     Active Substance: SUMATRIPTAN
     Indication: Migraine
     Dosage: 50 MG, 1D
  2. SUMATRIPTAN [Suspect]
     Active Substance: SUMATRIPTAN
     Indication: Analgesic therapy
  3. CINNARIZINE [Suspect]
     Active Substance: CINNARIZINE
     Indication: Migraine
     Dosage: 100 MG, 1D FOR 2.5 YEARS
  4. CINNARIZINE [Suspect]
     Active Substance: CINNARIZINE
     Indication: Analgesic therapy
  5. TOPIRAMATE [Suspect]
     Active Substance: TOPIRAMATE
     Indication: Migraine
     Dosage: 75 MG, 1D
  6. TOPIRAMATE [Suspect]
     Active Substance: TOPIRAMATE
     Indication: Analgesic therapy
  7. VENLAFAXINE [Suspect]
     Active Substance: VENLAFAXINE HYDROCHLORIDE
     Indication: Migraine
     Dosage: UNK
  8. VENLAFAXINE [Suspect]
     Active Substance: VENLAFAXINE HYDROCHLORIDE
     Indication: Analgesic therapy
  9. INDOMETHACIN [Suspect]
     Active Substance: INDOMETHACIN
     Indication: Migraine
     Dosage: 20/MONTH
  10. INDOMETHACIN [Suspect]
     Active Substance: INDOMETHACIN
     Indication: Analgesic therapy
  11. NAPROXEN [Suspect]
     Active Substance: NAPROXEN
     Indication: Migraine
     Dosage: 10-12/MONTH
  12. NAPROXEN [Suspect]
     Active Substance: NAPROXEN
     Indication: Analgesic therapy
  13. AMITRIPTYLINE [Suspect]
     Active Substance: AMITRIPTYLINE
     Indication: Migraine
     Dosage: 25 MG, 1D
  14. AMITRIPTYLINE [Suspect]
     Active Substance: AMITRIPTYLINE
     Indication: Analgesic therapy

REACTIONS (4)
  - Drug dependence [Recovering/Resolving]
  - Medication overuse headache [Recovering/Resolving]
  - Toxicity to various agents [Recovering/Resolving]
  - Treatment noncompliance [Unknown]
